FAERS Safety Report 8271761-9 (Version None)
Quarter: 2012Q2

REPORT INFORMATION
  Report Type: 
  Country: None (occurrence: None)
  Receive Date: 20120410
  Receipt Date: 20120227
  Transmission Date: 20120825
  Serious: No
  Sender: FDA-Public Use
  Company Number: US-BAUSCH-2012BL001433

PATIENT
  Age: 65 Year
  Sex: Female

DRUGS (1)
  1. ZIRGAN [Suspect]
     Indication: HERPES OPHTHALMIC
     Route: 047
     Dates: start: 20120218, end: 20120218

REACTIONS (3)
  - DRUG INEFFECTIVE [None]
  - OCULAR HYPERAEMIA [None]
  - EYE PAIN [None]
